FAERS Safety Report 5702727-8 (Version None)
Quarter: 2008Q2

REPORT INFORMATION
  Report Type: 
  Country: None (occurrence: None)
  Receive Date: 20080411
  Receipt Date: 20080403
  Transmission Date: 20081010
  Serious: Yes (Other)
  Sender: FDA-Public Use
  Company Number: B0445588A

PATIENT
  Age: 28 Year
  Sex: Female

DRUGS (8)
  1. BLINDED TRIAL MEDICATION [Suspect]
     Indication: HIV INFECTION
     Route: 048
  2. COMBIVIR [Suspect]
     Indication: HIV INFECTION
     Dosage: 1TAB TWICE PER DAY
     Route: 048
  3. EFAVIRENZ [Suspect]
     Indication: HIV INFECTION
     Dosage: 600MG PER DAY
     Route: 048
  4. RIFAMPICIN [Suspect]
  5. ISONIAZID [Suspect]
  6. PYRAZINAMIDE [Suspect]
  7. FLUCONAZOLE [Suspect]
  8. ETHAMBUTOL HYDROCHLORIDE [Concomitant]

REACTIONS (7)
  - ANAEMIA [None]
  - COUGH [None]
  - HEPATITIS [None]
  - HYPERBILIRUBINAEMIA [None]
  - PNEUMONIA [None]
  - PRODUCTIVE COUGH [None]
  - PYREXIA [None]
